FAERS Safety Report 10029666 (Version 1)
Quarter: 2014Q1

REPORT INFORMATION
  Report Type: Spontaneous
  Country: US (occurrence: None)
  Receive Date: 20140321
  Receipt Date: 20140321
  Transmission Date: 20141002
  Serious: Yes (Hospitalization, Disabling, Other)
  Sender: FDA-Public Use
  Company Number: None

PATIENT
  Age: 51 Year
  Sex: Male
  Weight: 97.52 kg

DRUGS (1)
  1. LEVAQUIN [Suspect]
     Indication: SINUSITIS
     Dosage: 1 PILL THREE TIMES DAILY TAKEN BY MOUTH
     Route: 048

REACTIONS (6)
  - Contraindication to medical treatment [None]
  - Rotator cuff syndrome [None]
  - Tendon rupture [None]
  - Colitis ulcerative [None]
  - Neuropathy peripheral [None]
  - Atrial fibrillation [None]
